FAERS Safety Report 11617136 (Version 2)
Quarter: 2015Q4

REPORT INFORMATION
  Report Type: Report from Study
  Country: US (occurrence: US)
  Receive Date: 20151009
  Receipt Date: 20151221
  Transmission Date: 20160304
  Serious: No
  Sender: FDA-Public Use
  Company Number: GXBR2015US002207

PATIENT
  Age: 63 Year
  Sex: Female

DRUGS (4)
  1. MULTIPLE VITAMINS [Concomitant]
     Active Substance: VITAMINS
     Indication: SUPPLEMENTATION THERAPY
     Dosage: UNK DF, UNK
     Route: 065
  2. GLATOPA [Suspect]
     Active Substance: GLATIRAMER ACETATE
     Indication: PRODUCT USED FOR UNKNOWN INDICATION
     Dosage: 20 MG, QD
     Route: 065
     Dates: start: 20150919
  3. LITHIUM. [Concomitant]
     Active Substance: LITHIUM
     Indication: PRODUCT USED FOR UNKNOWN INDICATION
     Dosage: UNK DF, UNK
     Route: 065
  4. ANTIHYPERTENSIVE DRUGS [Concomitant]
     Active Substance: UNSPECIFIED INGREDIENT
     Indication: HYPERTENSION
     Dosage: UNK DF, UNK
     Route: 065

REACTIONS (11)
  - Injection site reaction [Not Recovered/Not Resolved]
  - Dizziness [Not Recovered/Not Resolved]
  - Gait disturbance [Not Recovered/Not Resolved]
  - Pruritus [Not Recovered/Not Resolved]
  - Fatigue [Not Recovered/Not Resolved]
  - Injection site swelling [Not Recovered/Not Resolved]
  - Memory impairment [Not Recovered/Not Resolved]
  - Decreased immune responsiveness [Not Recovered/Not Resolved]
  - Energy increased [Not Recovered/Not Resolved]
  - Therapeutic response unexpected [Not Recovered/Not Resolved]
  - Depressed mood [Not Recovered/Not Resolved]

NARRATIVE: CASE EVENT DATE: 20150927
